FAERS Safety Report 7767163-1 (Version None)
Quarter: 2011Q3

REPORT INFORMATION
  Report Type: 
  Country: None (occurrence: None)
  Receive Date: 20110922
  Receipt Date: 20100830
  Transmission Date: 20111222
  Serious: No
  Sender: FDA-Public Use
  Company Number: US-ASTRAZENECA-2010SE34853

PATIENT
  Sex: Female
  Weight: 63.5 kg

DRUGS (5)
  1. SEROQUEL [Suspect]
     Route: 048
  2. SEROQUEL [Suspect]
     Route: 048
  3. SEROQUEL [Suspect]
     Route: 048
  4. SEROQUEL [Suspect]
     Dosage: 400 MG 1/4 TABLET
     Route: 048
  5. SEROQUEL [Suspect]
     Route: 048

REACTIONS (5)
  - NIGHTMARE [None]
  - ANXIETY [None]
  - INSOMNIA [None]
  - SLEEP TERROR [None]
  - EMOTIONAL DISTRESS [None]
